FAERS Safety Report 6932702-7 (Version None)
Quarter: 2010Q3

REPORT INFORMATION
  Report Type: 
  Country: None (occurrence: None)
  Receive Date: 20100819
  Receipt Date: 20100811
  Transmission Date: 20110219
  Serious: Yes (Other)
  Sender: FDA-Public Use
  Company Number: TN-TYCO HEALTHCARE/MALLINCKRODT-T201001811

PATIENT
  Age: 26 Year
  Sex: Male

DRUGS (2)
  1. SODIUM IODIDE I 131 [Suspect]
     Indication: HYPERTHYROIDISM
     Dosage: UNK
  2. ANTITHYROID PREPARATIONS [Concomitant]
     Indication: HYPERTHYROIDISM
     Dosage: UNK

REACTIONS (1)
  - HYPOTHYROIDISM [None]
